FAERS Safety Report 6161023-8 (Version None)
Quarter: 2009Q2

REPORT INFORMATION
  Report Type: 
  Country: None (occurrence: None)
  Receive Date: 20090420
  Receipt Date: 20090409
  Transmission Date: 20091009
  Serious: Yes (Disabling)
  Sender: FDA-Public Use
  Company Number: GB-PFIZER INC-2009186899

PATIENT

DRUGS (4)
  1. CELECOXIB [Suspect]
     Indication: OSTEOARTHRITIS
     Dosage: UNK
     Route: 048
     Dates: start: 20090309, end: 20090319
  2. SIMVASTATIN [Concomitant]
     Dosage: 40 MG, 1X/DAY
     Dates: start: 20070903
  3. PIROXICAM [Concomitant]
     Dosage: 20 MG, 1X/DAY
     Dates: start: 20070903, end: 20090309
  4. TRAMADOL [Concomitant]
     Dosage: UNK
     Dates: start: 20080711

REACTIONS (1)
  - PERIPHERAL VASCULAR DISORDER [None]
